FAERS Safety Report 25308267 (Version 1)
Quarter: 2025Q2

REPORT INFORMATION
  Report Type: Spontaneous
  Country: US (occurrence: US)
  Receive Date: 20250513
  Receipt Date: 20250513
  Transmission Date: 20250717
  Serious: Yes (Other)
  Sender: SANOFI AVENTIS
  Company Number: US-SANOFI-02504248

PATIENT
  Age: 74 Year
  Sex: Female

DRUGS (1)
  1. LANTUS SOLOSTAR [Suspect]
     Active Substance: INSULIN GLARGINE
     Indication: Type 2 diabetes mellitus
     Dosage: 22 IU, QD

REACTIONS (6)
  - Diabetes mellitus [Unknown]
  - Dyspnoea [Unknown]
  - Hypokinesia [Unknown]
  - General physical health deterioration [Unknown]
  - Weight increased [Unknown]
  - Blood glucose abnormal [Recovered/Resolved]
